FAERS Safety Report 19462342 (Version 1)
Quarter: 2021Q2

REPORT INFORMATION
  Report Type: Spontaneous
  Country: FR (occurrence: FR)
  Receive Date: 20210625
  Receipt Date: 20210625
  Transmission Date: 20210717
  Serious: Yes (Life-Threatening, Disabling)
  Sender: FDA-Public Use
  Company Number: FR-TEVA-2021-FR-1925527

PATIENT
  Age: 54 Year
  Sex: Female
  Weight: 48.5 kg

DRUGS (6)
  1. HERCEPTIN [Concomitant]
     Active Substance: TRASTUZUMAB
  2. PACLITAXEL. [Suspect]
     Active Substance: PACLITAXEL
     Indication: INVASIVE DUCTAL BREAST CARCINOMA
     Dosage: PACLITAXEL 102 MG , UNIT DOSE : 1 DF
     Route: 041
     Dates: start: 20210525, end: 20210525
  3. PLITICAN, SOLUTION INJECTABLE [Concomitant]
     Active Substance: ALIZAPRIDE HYDROCHLORIDE
  4. POLARAMINE [Concomitant]
     Active Substance: DEXCHLORPHENIRAMINE MALEATE
  5. METHYLPREDNISOLONE. [Concomitant]
     Active Substance: METHYLPREDNISOLONE
  6. PERTUZUMAB. [Concomitant]
     Active Substance: PERTUZUMAB

REACTIONS (3)
  - Dyspnoea [Recovered/Resolved]
  - Angioedema [Recovered/Resolved]
  - Tremor [Recovered/Resolved]

NARRATIVE: CASE EVENT DATE: 20210525
